FAERS Safety Report 8573275-5 (Version None)
Quarter: 2012Q3

REPORT INFORMATION
  Report Type: 
  Country: None (occurrence: None)
  Receive Date: 20120806
  Receipt Date: 20120731
  Transmission Date: 20120928
  Serious: Yes (Other)
  Sender: FDA-Public Use
  Company Number: US-PFIZER INC-2012171499

PATIENT
  Age: 56 Year
  Sex: Female
  Weight: 99.773 kg

DRUGS (4)
  1. SYNTHROID [Concomitant]
     Indication: HYPOTHYROIDISM
     Dosage: UNK
  2. CELEBREX [Suspect]
     Indication: ARTHRITIS
     Dosage: UNK, 1X/DAY
     Route: 048
     Dates: end: 20120712
  3. PERCOCET [Concomitant]
     Indication: PAIN
     Dosage: UNK
  4. LYRICA [Suspect]
     Indication: NEUROPATHY PERIPHERAL
     Dosage: 100 MG, 2X/DAY
     Route: 048

REACTIONS (16)
  - DIVERTICULITIS [None]
  - HEADACHE [None]
  - DEPRESSION [None]
  - BACK PAIN [None]
  - RESTLESS LEGS SYNDROME [None]
  - INTERVERTEBRAL DISC DEGENERATION [None]
  - NEUROPATHY PERIPHERAL [None]
  - ANXIETY [None]
  - HIATUS HERNIA [None]
  - MIGRAINE [None]
  - BREAST CANCER IN SITU [None]
  - PINEAL GLAND CYST [None]
  - BALANCE DISORDER [None]
  - LUMBAR VERTEBRAL FRACTURE [None]
  - MALIGNANT MELANOMA [None]
  - POLYNEUROPATHY [None]
